FAERS Safety Report 9974725 (Version 1)
Quarter: 2014Q1

REPORT INFORMATION
  Report Type: Report from Study
  Country: US (occurrence: US)
  Receive Date: 20140306
  Receipt Date: 20140306
  Transmission Date: 20141002
  Serious: No
  Sender: FDA-Public Use
  Company Number: US-ABBVIE-13P-163-1159104-00

PATIENT
  Age: 24 Year
  Sex: Female

DRUGS (6)
  1. HUMIRA [Suspect]
     Indication: CROHN^S DISEASE
     Dates: start: 20131011, end: 20131011
  2. HUMIRA [Suspect]
  3. ZOLOFT [Concomitant]
     Indication: DEPRESSION
  4. ASACOL [Concomitant]
     Indication: CROHN^S DISEASE
  5. ENTOCORT EC [Concomitant]
     Indication: CROHN^S DISEASE
  6. CONTRACEPTIVES [Concomitant]
     Indication: CONTRACEPTION

REACTIONS (2)
  - Ear pain [Not Recovered/Not Resolved]
  - Paraesthesia [Not Recovered/Not Resolved]
